FAERS Safety Report 7913288-7 (Version None)
Quarter: 2011Q4

REPORT INFORMATION
  Report Type: 
  Country: None (occurrence: None)
  Receive Date: 20111114
  Receipt Date: 20111103
  Transmission Date: 20120403
  Serious: Yes (Other)
  Sender: FDA-Public Use
  Company Number: CH-ASTRAZENECA-2011SE66839

PATIENT
  Age: 82 Year
  Sex: Male

DRUGS (6)
  1. MOTILIUM [Concomitant]
     Route: 048
  2. ZOLPIDEM TARTRATE [Concomitant]
     Route: 048
     Dates: start: 20110101
  3. COZAAR [Concomitant]
     Dates: end: 20110906
  4. NEXIUM [Suspect]
     Route: 048
     Dates: start: 20110810, end: 20110903
  5. DISTRANEURIN [Concomitant]
     Dates: start: 20110831, end: 20110905
  6. CITALOPRAM MEPHA [Suspect]
     Route: 048
     Dates: end: 20110906

REACTIONS (1)
  - INAPPROPRIATE ANTIDIURETIC HORMONE SECRETION [None]
